FAERS Safety Report 7463530-4 (Version None)
Quarter: 2011Q2

REPORT INFORMATION
  Report Type: 
  Country: None (occurrence: None)
  Receive Date: 20110506
  Receipt Date: 20110426
  Transmission Date: 20111010
  Serious: Yes (Other)
  Sender: FDA-Public Use
  Company Number: PHEH2009US11306

PATIENT
  Sex: Female

DRUGS (11)
  1. LIPITOR [Concomitant]
  2. M.V.I. [Concomitant]
  3. TASIGNA [Suspect]
     Dosage: 200 MG, BID
     Route: 048
     Dates: start: 20110201, end: 20110401
  4. HYDROCHLOROTHIAZIDE [Concomitant]
  5. CLARITIN [Concomitant]
  6. PRILOSEC [Concomitant]
  7. VITAMIN B COMPLEX CAP [Concomitant]
  8. TASIGNA [Suspect]
     Indication: CHRONIC MYELOID LEUKAEMIA
     Dosage: 400 MG, BID
     Route: 048
     Dates: start: 20090729, end: 20090902
  9. GLEEVEC [Suspect]
  10. SPRYCEL [Suspect]
  11. CALCIUM [Concomitant]

REACTIONS (1)
  - THROMBOCYTOPENIA [None]
